FAERS Safety Report 11448893 (Version 1)
Quarter: 2015Q3

REPORT INFORMATION
  Report Type: Spontaneous
  Country: US (occurrence: US)
  Receive Date: 20150902
  Receipt Date: 20150902
  Transmission Date: 20151125
  Serious: No
  Sender: FDA-Public Use
  Company Number: US-MEDA-2015080033

PATIENT
  Sex: Female
  Weight: 57 kg

DRUGS (2)
  1. ELESTRIN [Suspect]
     Active Substance: ESTRADIOL
     Indication: MENOPAUSE
     Route: 061
     Dates: start: 201503
  2. ELESTRIN [Suspect]
     Active Substance: ESTRADIOL
     Indication: HOT FLUSH
     Route: 061
     Dates: start: 201503

REACTIONS (3)
  - Application site dryness [Unknown]
  - Insomnia [Unknown]
  - Agitation [Unknown]

NARRATIVE: CASE EVENT DATE: 2015
